FAERS Safety Report 13551690 (Version 6)
Quarter: 2018Q1

REPORT INFORMATION
  Report Type: Spontaneous
  Country: US (occurrence: US)
  Receive Date: 20170516
  Receipt Date: 20180314
  Transmission Date: 20180508
  Serious: Yes (Hospitalization, Other)
  Sender: FDA-Public Use
  Company Number: US-ACTELION-A-NJ2017-153898

PATIENT
  Age: 76 Year
  Sex: Female

DRUGS (4)
  1. WARFARIN [Concomitant]
     Active Substance: WARFARIN
  2. DILTIAZEM. [Concomitant]
     Active Substance: DILTIAZEM
  3. TRACLEER [Suspect]
     Active Substance: BOSENTAN
     Indication: PULMONARY ARTERIAL HYPERTENSION
     Dosage: 125 MG, BID
     Route: 048
     Dates: start: 20161223
  4. DIGOXIN. [Concomitant]
     Active Substance: DIGOXIN

REACTIONS (11)
  - Fall [Unknown]
  - Dyspnoea [Recovering/Resolving]
  - Femur fracture [Unknown]
  - Hip surgery [Unknown]
  - Dizziness [Unknown]
  - Back injury [Unknown]
  - Back disorder [Unknown]
  - Contusion [Unknown]
  - Hip fracture [Unknown]
  - Back pain [Not Recovered/Not Resolved]
  - Blood potassium increased [Recovering/Resolving]

NARRATIVE: CASE EVENT DATE: 20170430
